FAERS Safety Report 8758481 (Version 1)
Quarter: 2012Q4

REPORT INFORMATION
  Report Type: 
  Country: US (occurrence: US)
  Receive Date: 20120829
  Receipt Date: 20120829
  Transmission Date: 20130627
  Serious: Yes (Other)
  Sender: FDA-Public Use
  Company Number: US-JNJFOC-20120811288

PATIENT
  Sex: Female
  Weight: 83.92 kg

DRUGS (9)
  1. FENTANYL TRANSDERMAL SYSTEM [Suspect]
     Indication: FIBROMYALGIA
     Route: 062
     Dates: start: 201204, end: 201205
  2. FENTANYL TRANSDERMAL SYSTEM [Suspect]
     Indication: FIBROMYALGIA
     Route: 062
     Dates: start: 201205
  3. FENTANYL TRANSDERMAL SYSTEM [Suspect]
     Indication: FIBROMYALGIA
     Route: 062
     Dates: end: 201108
  4. FENTANYL TRANSDERMAL SYSTEM [Suspect]
     Indication: MUSCULOSKELETAL PAIN
     Route: 062
     Dates: start: 201204, end: 201205
  5. FENTANYL TRANSDERMAL SYSTEM [Suspect]
     Indication: MUSCULOSKELETAL PAIN
     Route: 062
     Dates: end: 201108
  6. FENTANYL TRANSDERMAL SYSTEM [Suspect]
     Indication: MUSCULOSKELETAL PAIN
     Route: 062
     Dates: start: 201205
  7. MS CONTIN [Concomitant]
     Indication: PAIN
     Route: 048
     Dates: start: 201204, end: 201205
  8. OXYCONTIN [Concomitant]
     Indication: PAIN
     Route: 048
     Dates: start: 201205, end: 2012
  9. PERCOCET [Concomitant]
     Indication: PAIN
     Route: 048
     Dates: start: 201208

REACTIONS (5)
  - Road traffic accident [Recovered/Resolved]
  - Post concussion syndrome [Not Recovered/Not Resolved]
  - Joint injury [Recovered/Resolved]
  - Pain [Recovered/Resolved]
  - Poor quality sleep [Not Recovered/Not Resolved]
